FAERS Safety Report 6736307-2 (Version None)
Quarter: 2010Q2

REPORT INFORMATION
  Report Type: 
  Country: None (occurrence: None)
  Receive Date: 20100521
  Receipt Date: 20100514
  Transmission Date: 20101027
  Serious: Yes (Life-Threatening, Hospitalization, Disabling)
  Sender: FDA-Public Use
  Company Number: GXKR2009GB11821

PATIENT
  Age: 63 Year
  Sex: Male
  Weight: 80 kg

DRUGS (7)
  1. LANSOPRAZOLE [Suspect]
     Dosage: UNK
     Route: 065
     Dates: start: 20060725, end: 20060808
  2. LOSEC                                   /NET/ [Suspect]
     Indication: GASTROOESOPHAGEAL REFLUX DISEASE
     Dosage: 40 MG, UNK
     Route: 048
     Dates: start: 20020101, end: 20060501
  3. LOSEC                                   /NET/ [Suspect]
     Dosage: UNK
     Dates: start: 20060601
  4. OMEPRAZOLE [Suspect]
     Dosage: UNK
     Route: 042
     Dates: start: 20050505, end: 20060617
  5. OMEPRAZOLE [Suspect]
     Dosage: UNK
     Route: 065
     Dates: start: 20050101, end: 20050501
  6. PANTOPRAZOLE [Suspect]
     Indication: GASTROOESOPHAGEAL REFLUX DISEASE
     Route: 065
  7. ACIPHEX [Suspect]
     Route: 065

REACTIONS (4)
  - HYPOCALCAEMIA [None]
  - HYPOMAGNESAEMIA [None]
  - HYPOPARATHYROIDISM SECONDARY [None]
  - TETANY [None]
